FAERS Safety Report 17339733 (Version 1)
Quarter: 2020Q1

REPORT INFORMATION
  Report Type: Spontaneous
  Country: DE (occurrence: DE)
  Receive Date: 20200129
  Receipt Date: 20200129
  Transmission Date: 20200409
  Serious: Yes (Hospitalization, Other)
  Sender: FDA-Public Use
  Company Number: DE-PFIZER INC-2020004582

PATIENT
  Age: 76 Year
  Sex: Female

DRUGS (2)
  1. ZYVOXID [Suspect]
     Active Substance: LINEZOLID
     Indication: POST PROCEDURAL INFECTION
     Dosage: 600 MG, 2X/DAY
     Route: 048
     Dates: start: 201910, end: 20191223
  2. ZYVOXID [Suspect]
     Active Substance: LINEZOLID
     Indication: ARTHRITIS INFECTIVE

REACTIONS (12)
  - Gait inability [Not Recovered/Not Resolved]
  - Product use issue [Unknown]
  - Dysarthria [Unknown]
  - Hypoaesthesia [Not Recovered/Not Resolved]
  - Incontinence [Not Recovered/Not Resolved]
  - Optic neuritis [Not Recovered/Not Resolved]
  - Haemoglobin decreased [Recovering/Resolving]
  - Off label use [Unknown]
  - Vision blurred [Not Recovered/Not Resolved]
  - General physical health deterioration [Unknown]
  - Blood test abnormal [Unknown]
  - Dizziness [Recovering/Resolving]

NARRATIVE: CASE EVENT DATE: 20191209
